FAERS Safety Report 16479188 (Version 1)
Quarter: 2019Q2

REPORT INFORMATION
  Report Type: Spontaneous
  Country: US (occurrence: US)
  Receive Date: 20190626
  Receipt Date: 20190626
  Transmission Date: 20190711
  Serious: Yes (Other)
  Sender: FDA-Public Use
  Company Number: US-SAOL THERAPEUTICS-2019SAO00142

PATIENT
  Age: 68 Year
  Sex: Female
  Weight: 52.15 kg

DRUGS (11)
  1. LIORESAL [Suspect]
     Active Substance: BACLOFEN
     Indication: MUSCLE SPASMS
  2. CLONAZEPAM. [Concomitant]
     Active Substance: CLONAZEPAM
     Dosage: 0.5 MG, 1X/DAYEVERY EVENING
     Route: 048
  3. LOSARTAN. [Concomitant]
     Active Substance: LOSARTAN
     Dosage: 25 MG, 1X/DAY
     Route: 048
  4. LIORESAL [Suspect]
     Active Substance: BACLOFEN
     Indication: MUSCLE SPASTICITY
     Dosage: 236.3 ?G, \DAY (9.8 ?G/HR)
     Route: 037
  5. LYRICA [Concomitant]
     Active Substance: PREGABALIN
     Dosage: 150 MG
  6. TROSPIUM [Concomitant]
     Active Substance: TROSPIUM
     Dosage: 20 MG, 2X/DAY
     Route: 048
  7. LIORESAL [Suspect]
     Active Substance: BACLOFEN
     Indication: MYELOPATHY
  8. LIORESAL [Suspect]
     Active Substance: BACLOFEN
     Indication: MUSCLE SPASMS
  9. LIORESAL [Suspect]
     Active Substance: BACLOFEN
     Indication: MYELITIS TRANSVERSE
  10. HYDROCODONE/ACETAMINOPHEN [Concomitant]
     Active Substance: ACETAMINOPHEN\HYDROCODONE
     Dosage: 1 DOSAGE UNITS, EVERY 4-6 HRS AS NEEDED
     Route: 048
  11. ORAL BACLOFEN [Concomitant]
     Active Substance: BACLOFEN
     Dosage: UNK
     Route: 048

REACTIONS (7)
  - Visual impairment [Recovered/Resolved]
  - Anxiety [Recovered/Resolved]
  - Slow speech [Recovered/Resolved]
  - Memory impairment [Recovered/Resolved]
  - Drug withdrawal syndrome [Recovered/Resolved]
  - Aphasia [Recovered/Resolved]
  - Balance disorder [Recovered/Resolved]

NARRATIVE: CASE EVENT DATE: 201904
